FAERS Safety Report 7845987-X (Version None)
Quarter: 2011Q4

REPORT INFORMATION
  Report Type: 
  Country: None (occurrence: None)
  Receive Date: 20111025
  Receipt Date: 20111019
  Transmission Date: 20120403
  Serious: Yes (Hospitalization, Other)
  Sender: FDA-Public Use
  Company Number: US-ABBOTT-11P-163-0865189-00

PATIENT
  Sex: Male
  Weight: 77.18 kg

DRUGS (9)
  1. ASACOL [Concomitant]
     Indication: CROHN'S DISEASE
  2. ENTECORT EC [Concomitant]
     Indication: CROHN'S DISEASE
  3. METOPROLOL TARTRATE [Concomitant]
     Indication: HYPERTENSION
  4. HUMIRA [Suspect]
     Indication: CROHN'S DISEASE
     Dates: start: 20110719
  5. CRESTOR [Concomitant]
     Indication: BLOOD CHOLESTEROL INCREASED
  6. PLAVIX [Concomitant]
     Indication: STENT PLACEMENT
  7. NEXIUM [Concomitant]
     Indication: PRODUCT USED FOR UNKNOWN INDICATION
  8. VICODIN [Concomitant]
     Indication: PAIN
  9. CELEXA [Concomitant]
     Indication: DEPRESSION

REACTIONS (11)
  - CHEST PAIN [None]
  - ANGIOPLASTY [None]
  - THROMBOSIS [None]
  - FIBRIN D DIMER INCREASED [None]
  - OESOPHAGITIS [None]
  - TOOTHACHE [None]
  - MUSCLE SPASMS [None]
  - FUNGAL INFECTION [None]
  - THERAPEUTIC RESPONSE UNEXPECTED [None]
  - WEIGHT INCREASED [None]
  - GASTRITIS [None]
